FAERS Safety Report 16656386 (Version 1)
Quarter: 2019Q3

REPORT INFORMATION
  Report Type: Report from Study
  Country: AT (occurrence: AT)
  Receive Date: 20190801
  Receipt Date: 20190801
  Transmission Date: 20191004
  Serious: Yes (Hospitalization)
  Sender: FDA-Public Use
  Company Number: AT-PACIRA-201400216

PATIENT
  Age: 15 Year
  Sex: Male
  Weight: 45 kg

DRUGS (11)
  1. CYCLOPHOSPHAMIDE. [Concomitant]
     Active Substance: CYCLOPHOSPHAMIDE
     Dosage: 110 MG EVERY 4 WEEKS, FREQUENCY : DAILY
     Route: 048
     Dates: start: 20140723
  2. THALIDOMIDE [Concomitant]
     Active Substance: THALIDOMIDE
     Dosage: 100 MG, DAILY, FREQUENCY : DAILY
     Route: 048
     Dates: start: 20140409
  3. CELECOXIB. [Concomitant]
     Active Substance: CELECOXIB
     Dosage: 400 MG, DAILY, FREQUENCY : DAILY
     Route: 048
     Dates: start: 20140409
  4. DEPOCYTE [Suspect]
     Active Substance: CYTARABINE
     Indication: MEDULLOBLASTOMA
  5. FENOFIBRATE. [Concomitant]
     Active Substance: FENOFIBRATE
     Dosage: 200 MG, DAILY, FREQUENCY : DAILY
     Route: 048
     Dates: start: 20140409
  6. MAXI-KALZ VIT D3 [Concomitant]
     Active Substance: CALCIUM CARBONATE\CHOLECALCIFEROL
     Dosage: 500 MG/400IE, FREQUENCY : DAILY
     Route: 048
     Dates: start: 20140414
  7. THYREX [Concomitant]
     Active Substance: LEVOTHYROXINE SODIUM
     Dosage: 50 MCG DAILY, FREQUENCY : DAILY
     Route: 048
     Dates: start: 20140409
  8. NEXIUM [Concomitant]
     Active Substance: ESOMEPRAZOLE MAGNESIUM
     Dosage: 40 MG, DAILY, FREQUENCY : DAILY
     Route: 048
     Dates: start: 20140409
  9. DEPOCYTE [Suspect]
     Active Substance: CYTARABINE
     Indication: MEDULLOBLASTOMA
     Dosage: 35 MG EVERY 4 WEEKS; ROUTE: INTRAVENTRICULAR. LAST DOSE PRIOR TO SAE: 15JUL2014
     Route: 050
     Dates: start: 20140425
  10. EUSAPRIM [Concomitant]
     Active Substance: SULFAMETHOXAZOLE\TRIMETHOPRIM
     Dosage: DAILY ^2X 80MG (TUESDAY-THURSDAY)^
     Route: 048
     Dates: start: 20140409
  11. ETOPOSIDE. [Concomitant]
     Active Substance: ETOPOSIDE
     Dosage: 0.5 MG EVERY 4 WEEKS. ROUTE: INTRAVENTRICULAR.
     Route: 050
     Dates: start: 20140409

REACTIONS (1)
  - Pyrexia [Recovered/Resolved]

NARRATIVE: CASE EVENT DATE: 20140728
